FAERS Safety Report 25896976 (Version 1)
Quarter: 2025Q4

REPORT INFORMATION
  Report Type: Spontaneous
  Country: US (occurrence: None)
  Receive Date: 20251008
  Receipt Date: 20251008
  Transmission Date: 20260118
  Serious: Yes (Disabling)
  Sender: FDA-CTU
  Company Number: None

PATIENT
  Sex: Female

DRUGS (1)
  1. KYBELLA [Suspect]
     Active Substance: DEOXYCHOLIC ACID
     Indication: Swelling
     Dosage: ONE APPLICATION SUBCUTANEUS ?
     Route: 058
     Dates: start: 20210301, end: 20210301

REACTIONS (2)
  - Swelling face [None]
  - Injection site induration [None]

NARRATIVE: CASE EVENT DATE: 20210301
